FAERS Safety Report 13737881 (Version 1)
Quarter: 2017Q3

REPORT INFORMATION
  Report Type: Spontaneous
  Country: US (occurrence: US)
  Receive Date: 20170710
  Receipt Date: 20170710
  Transmission Date: 20171127
  Serious: Yes (Other)
  Sender: FDA-Public Use
  Company Number: US-SAOL THERAPEUTICS-2016SAO00329

PATIENT
  Sex: Male
  Weight: 42 kg

DRUGS (7)
  1. LIORESAL [Suspect]
     Active Substance: BACLOFEN
     Indication: MUSCLE SPASTICITY
     Dosage: 795 ?G, \DAY
     Route: 037
  2. GABAPENTIN. [Concomitant]
     Active Substance: GABAPENTIN
     Dosage: UKN
     Route: 048
  3. CLONAZEPAM. [Concomitant]
     Active Substance: CLONAZEPAM
     Dosage: UKN
     Route: 048
  4. BACLOFEN. [Concomitant]
     Active Substance: BACLOFEN
     Dosage: UKN
     Route: 048
  5. OMEPRAZOLE. [Concomitant]
     Active Substance: OMEPRAZOLE
     Dosage: UKN
     Route: 048
  6. LIORESAL [Suspect]
     Active Substance: BACLOFEN
     Indication: CEREBRAL PALSY
  7. VALIUM [Concomitant]
     Active Substance: DIAZEPAM
     Dosage: UKN
     Route: 048

REACTIONS (7)
  - Overdose [Recovered/Resolved]
  - Pruritus [Recovered/Resolved]
  - Clonus [Recovered/Resolved]
  - Withdrawal syndrome [Recovered/Resolved]
  - Therapeutic response unexpected [Recovered/Resolved]
  - Hypertonia [Recovered/Resolved]
  - Device infusion issue [Recovered/Resolved]

NARRATIVE: CASE EVENT DATE: 2014
